FAERS Safety Report 24370786 (Version 1)
Quarter: 2024Q3

REPORT INFORMATION
  Report Type: Spontaneous
  Country: US (occurrence: US)
  Receive Date: 20240927
  Receipt Date: 20240927
  Transmission Date: 20241017
  Serious: Yes (Other)
  Sender: RECKITT BENCKISER
  Company Number: US-Indivior-Limited- INDV-143842-2024

PATIENT
  Age: 18 Year
  Sex: Male

DRUGS (5)
  1. PERSERIS [Suspect]
     Active Substance: RISPERIDONE
     Indication: Schizophrenia
     Dosage: 90 MILLIGRAM, Q3WK
     Route: 058
     Dates: start: 202304
  2. PERSERIS [Suspect]
     Active Substance: RISPERIDONE
     Dosage: 90 MILLIGRAM, Q3WK
     Route: 058
     Dates: start: 20240305
  3. PERSERIS [Suspect]
     Active Substance: RISPERIDONE
     Dosage: 90 MILLIGRAM, Q3WK
     Route: 058
     Dates: start: 20240326
  4. RISPERIDONE [Concomitant]
     Active Substance: RISPERIDONE
     Indication: Supplementation therapy
     Dosage: 0.5 MILLIGRAM, BID
     Route: 048
  5. COGENTIN [Interacting]
     Active Substance: BENZTROPINE MESYLATE
     Indication: Muscle twitching
     Dosage: 1 MILLIGRAM, HS
     Route: 065
     Dates: start: 20230824

REACTIONS (3)
  - Anaphylactic reaction [Not Recovered/Not Resolved]
  - Inappropriate schedule of product administration [Not Recovered/Not Resolved]
  - Muscle twitching [Unknown]

NARRATIVE: CASE EVENT DATE: 20230101
